FAERS Safety Report 17450139 (Version 1)
Quarter: 2020Q1

REPORT INFORMATION
  Report Type: Spontaneous
  Country: US (occurrence: US)
  Receive Date: 20200224
  Receipt Date: 20200224
  Transmission Date: 20200409
  Serious: No
  Sender: FDA-Public Use
  Company Number: US-BTCP PHARMA-INS201902-000338

PATIENT
  Sex: Male

DRUGS (6)
  1. SUBSYS [Suspect]
     Active Substance: FENTANYL
     Indication: BREAKTHROUGH PAIN
     Route: 060
     Dates: start: 201809
  2. PROCHLORPERAZINE. [Concomitant]
     Active Substance: PROCHLORPERAZINE
  3. NARCAN [Concomitant]
     Active Substance: NALOXONE HYDROCHLORIDE
  4. AMARYL [Concomitant]
     Active Substance: GLIMEPIRIDE
  5. SUBSYS [Suspect]
     Active Substance: FENTANYL
     Route: 060
     Dates: start: 201809, end: 201902
  6. LISINOPRIL. [Concomitant]
     Active Substance: LISINOPRIL

REACTIONS (3)
  - Accidental exposure to product [Unknown]
  - Aphthous ulcer [Recovered/Resolved]
  - Product quality issue [Unknown]
